FAERS Safety Report 25126364 (Version 2)
Quarter: 2025Q2

REPORT INFORMATION
  Report Type: Spontaneous
  Country: US (occurrence: US)
  Receive Date: 20250327
  Receipt Date: 20250403
  Transmission Date: 20250716
  Serious: Yes (Other)
  Sender: TAKEDA
  Company Number: US-TAKEDA-2025TUS010926

PATIENT
  Age: 61 Year
  Sex: Male
  Weight: 48 kg

DRUGS (2)
  1. FRUZAQLA [Suspect]
     Active Substance: FRUQUINTINIB
     Indication: Anaemia
  2. FRUZAQLA [Suspect]
     Active Substance: FRUQUINTINIB
     Indication: Rectal cancer

REACTIONS (8)
  - Necrotising fasciitis [Unknown]
  - Pyrexia [Unknown]
  - Infection [Unknown]
  - Decubitus ulcer [Unknown]
  - Hyperhidrosis [Unknown]
  - Extra dose administered [Unknown]
  - Product dose omission issue [Unknown]
  - Stomatitis [Unknown]

NARRATIVE: CASE EVENT DATE: 20250301
